FAERS Safety Report 20645567 (Version 3)
Quarter: 2023Q2

REPORT INFORMATION
  Report Type: Report from Study
  Country: FR (occurrence: FR)
  Receive Date: 20220328
  Receipt Date: 20230619
  Transmission Date: 20230722
  Serious: Yes (Hospitalization, Other)
  Sender: FDA-Public Use
  Company Number: FR-NOVARTISPH-PHHY2018FR084421

PATIENT
  Age: 30 Year
  Sex: Male
  Weight: 62.6 kg

DRUGS (6)
  1. VIJOICE [Suspect]
     Active Substance: ALPELISIB
     Indication: PIK3CA related overgrowth spectrum
     Dosage: 250 MG, QD
     Route: 048
     Dates: start: 20180810, end: 20180929
  2. VIJOICE [Suspect]
     Active Substance: ALPELISIB
     Dosage: 250 MG, QD
     Route: 048
     Dates: start: 20181010, end: 20181228
  3. VIJOICE [Suspect]
     Active Substance: ALPELISIB
     Dosage: 150 MG, QD
     Route: 048
     Dates: start: 20181229, end: 20220314
  4. ARIXTRA [Concomitant]
     Active Substance: FONDAPARINUX SODIUM
     Indication: Thrombosis
     Dosage: 7.5 MG, QD
     Route: 065
  5. TRAMADOL [Concomitant]
     Active Substance: TRAMADOL
     Indication: Pain
     Dosage: 50-150 MG, QD
     Route: 065
  6. DIFLUCAN [Concomitant]
     Active Substance: FLUCONAZOLE
     Indication: Pain
     Dosage: 1 -4 G
     Route: 065

REACTIONS (14)
  - Cellulitis [Recovered/Resolved]
  - C-reactive protein increased [Unknown]
  - Erysipelas [Recovered/Resolved]
  - Abscess limb [Recovering/Resolving]
  - Infection [Recovering/Resolving]
  - Escherichia infection [Unknown]
  - Urinary tract infection [Recovered/Resolved]
  - Prostatitis [Unknown]
  - Hyperglycaemia [Unknown]
  - Pyrexia [Recovered/Resolved]
  - Blood fibrinogen increased [Unknown]
  - Neutrophil count increased [Unknown]
  - Lymphocyte count increased [Unknown]
  - Blood glucose increased [Unknown]

NARRATIVE: CASE EVENT DATE: 20180820
